FAERS Safety Report 22087078 (Version 1)
Quarter: 2023Q1

REPORT INFORMATION
  Report Type: Spontaneous
  Country: FR (occurrence: FR)
  Receive Date: 20230313
  Receipt Date: 20230313
  Transmission Date: 20230418
  Serious: Yes (Other)
  Sender: FDA-Public Use
  Company Number: None

PATIENT
  Age: 64 Year
  Sex: Male

DRUGS (5)
  1. REMICADE [Suspect]
     Active Substance: INFLIXIMAB
     Indication: Spondyloarthropathy
     Dosage: 5 MG/KG/8 SEM
     Route: 042
     Dates: start: 20050101, end: 20061001
  2. HUMIRA [Suspect]
     Active Substance: ADALIMUMAB
     Indication: Spondyloarthropathy
     Dosage: 40 MG/2 SEM
     Route: 058
     Dates: start: 20100401, end: 20210801
  3. ENBREL [Suspect]
     Active Substance: ETANERCEPT
     Indication: Spondyloarthropathy
     Dosage: 50 MG/SEM
     Route: 058
     Dates: start: 20061001, end: 20090301
  4. HULIO [Suspect]
     Active Substance: ADALIMUMAB-FKJP
     Indication: Spondyloarthropathy
     Dosage: 40 MG/3 SEMAINES
     Route: 058
     Dates: start: 20210801, end: 20221206
  5. METHOTREXATE [Concomitant]
     Active Substance: METHOTREXATE
     Indication: Spondyloarthropathy
     Dosage: 15 MG/SEM
     Route: 048
     Dates: start: 20130401

REACTIONS (1)
  - Prostate cancer [Recovering/Resolving]

NARRATIVE: CASE EVENT DATE: 20221001
